FAERS Safety Report 17139687 (Version 1)
Quarter: 2019Q4

REPORT INFORMATION
  Report Type: Spontaneous
  Country: SE (occurrence: SE)
  Receive Date: 20191211
  Receipt Date: 20191211
  Transmission Date: 20200122
  Serious: Yes (Hospitalization)
  Sender: FDA-Public Use
  Company Number: SE-TEVA-2019-SE-1148654

PATIENT
  Age: 17 Year
  Sex: Female

DRUGS (3)
  1. FLUOXETINE [Suspect]
     Active Substance: FLUOXETINE HYDROCHLORIDE
     Dosage: UP TO 50
     Route: 048
     Dates: start: 20180502, end: 20180502
  2. LERGIGAN [PROMETHAZINE HYDROCHLORIDE] [Suspect]
     Active Substance: PROMETHAZINE HYDROCHLORIDE
     Dosage: UP TO 48 PCS
     Route: 048
     Dates: start: 20180502, end: 20180502
  3. PROPAVAN [Suspect]
     Active Substance: PROPIOMAZINE
     Dosage: 8 ST
     Route: 048
     Dates: start: 20180502, end: 20180502

REACTIONS (3)
  - Intentional overdose [Unknown]
  - Intentional self-injury [Unknown]
  - Restlessness [Unknown]

NARRATIVE: CASE EVENT DATE: 20180502
